FAERS Safety Report 5130701-1 (Version None)
Quarter: 2006Q4

REPORT INFORMATION
  Report Type: 
  Country: None (occurrence: None)
  Receive Date: 20061019
  Receipt Date: 20061017
  Transmission Date: 20070319
  Serious: Yes (Death, Congenital Anomaly)
  Sender: FDA-Public Use
  Company Number: US-JNJFOC-20060705986

PATIENT
  Sex: Female

DRUGS (3)
  1. TOPAMAX [Suspect]
     Indication: DRUG EXPOSURE DURING PREGNANCY
     Route: 015
  2. PRENATAL VITAMINS [Concomitant]
     Route: 015
  3. FOLIC ACID [Concomitant]

REACTIONS (1)
  - HEART DISEASE CONGENITAL [None]
